FAERS Safety Report 5738800-8 (Version None)
Quarter: 2008Q2

REPORT INFORMATION
  Report Type: 
  Country: None (occurrence: None)
  Receive Date: 20080515
  Receipt Date: 20080306
  Transmission Date: 20081010
  Serious: No
  Sender: FDA-Public Use
  Company Number: A0713855A

PATIENT
  Age: 64 Year
  Sex: Female

DRUGS (1)
  1. VERAMYST [Suspect]
     Dates: start: 20071201

REACTIONS (2)
  - PAROSMIA [None]
  - PHARMACEUTICAL PRODUCT COMPLAINT [None]
